FAERS Safety Report 26082445 (Version 3)
Quarter: 2025Q4

REPORT INFORMATION
  Report Type: Spontaneous
  Country: US (occurrence: US)
  Receive Date: 20251124
  Receipt Date: 20251230
  Transmission Date: 20260117
  Serious: Yes (Hospitalization, Other)
  Sender: DOMPE FARMACEUTICI
  Company Number: US-FARMAPROD-202510-3606

PATIENT
  Age: 81 Year
  Sex: Female

DRUGS (11)
  1. OXERVATE [Suspect]
     Active Substance: CENEGERMIN-BKBJ
     Indication: Neurotrophic keratopathy
     Route: 047
     Dates: start: 20250917, end: 20251222
  2. OXERVATE [Suspect]
     Active Substance: CENEGERMIN-BKBJ
     Indication: Hypoaesthesia eye
  3. ASPIRIN [Concomitant]
     Active Substance: ASPIRIN
  4. GABAPENTIN [Concomitant]
     Active Substance: GABAPENTIN
  5. OMEPRAZOLE [Concomitant]
     Active Substance: OMEPRAZOLE
  6. MISOPROSTOL [Concomitant]
     Active Substance: MISOPROSTOL
  7. BUPROPION [Concomitant]
     Active Substance: BUPROPION
     Dosage: FOR 24 HOURS
  8. DULOXETINE HYDROCHLORIDE [Concomitant]
     Active Substance: DULOXETINE HYDROCHLORIDE
  9. METFORMIN [Concomitant]
     Active Substance: METFORMIN HYDROCHLORIDE
  10. TRAZODONE HCL [Concomitant]
     Active Substance: TRAZODONE HYDROCHLORIDE
  11. AUTOLOGOUS HUMAN CORNEAL EPITHELIAL CELLS [Concomitant]
     Active Substance: AUTOLOGOUS HUMAN CORNEAL EPITHELIAL CELLS

REACTIONS (9)
  - Loss of consciousness [Recovering/Resolving]
  - Hypotension [Recovering/Resolving]
  - Cardiac disorder [Recovering/Resolving]
  - Cerebrovascular accident [Unknown]
  - Dehydration [Recovering/Resolving]
  - Illness [Unknown]
  - Dizziness [Unknown]
  - Product dose omission issue [Unknown]
  - Eye pain [Not Recovered/Not Resolved]

NARRATIVE: CASE EVENT DATE: 20251101
